FAERS Safety Report 23819899 (Version 1)
Quarter: 2024Q2

REPORT INFORMATION
  Report Type: Spontaneous
  Country: NL (occurrence: NL)
  Receive Date: 20240506
  Receipt Date: 20240506
  Transmission Date: 20240715
  Serious: Yes (Other)
  Sender: FDA-Public Use
  Company Number: None

PATIENT
  Age: 41 Year
  Sex: Female
  Weight: 72 kg

DRUGS (1)
  1. DROSPIRENONE\ETHINYL ESTRADIOL [Suspect]
     Active Substance: DROSPIRENONE\ETHINYL ESTRADIOL
     Indication: Endometriosis
     Dosage: 1 TABLET ONCE A DAY
     Route: 048
     Dates: start: 20201215, end: 20240201

REACTIONS (2)
  - Intraductal proliferative breast lesion [Not Recovered/Not Resolved]
  - Hormone receptor positive breast cancer [Not Recovered/Not Resolved]
